FAERS Safety Report 6020951-4 (Version None)
Quarter: 2008Q4

REPORT INFORMATION
  Report Type: 
  Country: None (occurrence: None)
  Receive Date: 20081229
  Receipt Date: 20081222
  Transmission Date: 20090506
  Serious: Yes (Other)
  Sender: FDA-Public Use
  Company Number: BE-BAYER-200826877GPV

PATIENT
  Age: 46 Year
  Sex: Female
  Weight: 61 kg

DRUGS (1)
  1. MIRENA [Suspect]
     Indication: METRORRHAGIA
     Dosage: TOTAL DAILY DOSE: 20 ?G
     Route: 015
     Dates: start: 20050531

REACTIONS (3)
  - HEADACHE [None]
  - RETINAL VASCULAR THROMBOSIS [None]
  - SCOTOMA [None]
